FAERS Safety Report 10259723 (Version 1)
Quarter: 2014Q2

REPORT INFORMATION
  Report Type: Spontaneous
  Country: US (occurrence: US)
  Receive Date: 20140625
  Receipt Date: 20140625
  Transmission Date: 20141212
  Serious: No
  Sender: FDA-Public Use
  Company Number: US-009507513-1406USA004528

PATIENT
  Sex: Female

DRUGS (4)
  1. CLARITIN [Suspect]
     Indication: HYPERSENSITIVITY
     Dosage: 20 UNK, UNK
     Route: 048
     Dates: start: 20140604
  2. CLARITIN [Suspect]
     Dosage: 10 MG, QD
     Route: 048
     Dates: start: 20140602
  3. SIMVASTATIN [Concomitant]
     Indication: PRODUCT USED FOR UNKNOWN INDICATION
     Dosage: UNK, UNKNOWN
  4. CARVEDILOL [Concomitant]
     Indication: PRODUCT USED FOR UNKNOWN INDICATION
     Dosage: UNK, UNKNOWN

REACTIONS (2)
  - Accidental overdose [Recovered/Resolved]
  - No adverse event [Unknown]
